FAERS Safety Report 9589071 (Version 1)
Quarter: 2013Q4

REPORT INFORMATION
  Report Type: Spontaneous
  Country: US (occurrence: US)
  Receive Date: 20131003
  Receipt Date: 20131003
  Transmission Date: 20140711
  Serious: No
  Sender: FDA-Public Use
  Company Number: US-AMGEN-USASP2012068412

PATIENT
  Age: 38 Year
  Sex: Female
  Weight: 135 kg

DRUGS (6)
  1. ENBREL [Suspect]
     Indication: PRODUCT USED FOR UNKNOWN INDICATION
     Dosage: 50 MG,ONCE A WEEK
     Route: 058
  2. YAZ 24+4 [Concomitant]
     Dosage: TAB 3-0.02MG
  3. METHOTREXATE [Concomitant]
     Dosage: 2.5 MG,
  4. FOLIC ACID [Concomitant]
  5. MOBIC [Concomitant]
     Dosage: 7.5 MG, UNK
  6. ADVIL                              /00044201/ [Concomitant]
     Dosage: 200 MG, UNK

REACTIONS (1)
  - Injection site pain [Unknown]
